FAERS Safety Report 4477284-7 (Version None)
Quarter: 2004Q4

REPORT INFORMATION
  Report Type: 
  Country: None (occurrence: None)
  Receive Date: 20041018
  Receipt Date: 20041013
  Transmission Date: 20050328
  Serious: Yes (Life-Threatening, Hospitalization)
  Sender: FDA-Public Use
  Company Number: US-MERCK-0410USA01956

PATIENT
  Age: 68 Year
  Sex: Male

DRUGS (5)
  1. TOPROL-XL [Concomitant]
     Route: 065
  2. PRILOSEC [Concomitant]
     Route: 065
  3. PAXIL [Concomitant]
     Route: 065
  4. ALTACE [Concomitant]
     Route: 065
  5. VIOXX [Suspect]
     Indication: ARTHRITIS
     Route: 048
     Dates: start: 20000914, end: 20040930

REACTIONS (1)
  - MYOCARDIAL INFARCTION [None]
